FAERS Safety Report 11988754 (Version 1)
Quarter: 2016Q1

REPORT INFORMATION
  Report Type: Spontaneous
  Country: US (occurrence: US)
  Receive Date: 20160202
  Receipt Date: 20160202
  Transmission Date: 20160526
  Serious: Yes (Other)
  Sender: FDA-Public Use
  Company Number: US-JNJFOC-20160123665

PATIENT
  Sex: Male
  Weight: 93.44 kg

DRUGS (7)
  1. LANTUS [Concomitant]
     Active Substance: INSULIN GLARGINE
     Indication: DIABETES MELLITUS
     Dosage: 50 UNITS IN THE MORNING/ SUBQ
     Route: 065
  2. XARELTO [Suspect]
     Active Substance: RIVAROXABAN
     Indication: PULMONARY EMBOLISM
     Route: 048
     Dates: start: 2013
  3. ATORVASTATIN [Concomitant]
     Active Substance: ATORVASTATIN
     Indication: BLOOD CHOLESTEROL
     Route: 065
     Dates: start: 2008
  4. HUMALOG [Concomitant]
     Active Substance: INSULIN LISPRO
     Indication: DIABETES MELLITUS
     Dosage: 5 TO 8 UNITS/ AFTER EVERY MEAL/ SUBQ
     Route: 065
  5. COQ 10 [Concomitant]
     Active Substance: UBIDECARENONE
     Indication: HYPOVITAMINOSIS
     Route: 065
     Dates: start: 2015
  6. TRIAZOLAM. [Concomitant]
     Active Substance: TRIAZOLAM
     Indication: SLEEP DISORDER
     Route: 065
     Dates: start: 2006
  7. TRADJENTA [Concomitant]
     Active Substance: LINAGLIPTIN
     Indication: DIABETES MELLITUS
     Route: 065
     Dates: start: 2014

REACTIONS (1)
  - Tremor [Unknown]
